FAERS Safety Report 18677510 (Version 1)
Quarter: 2020Q4

REPORT INFORMATION
  Report Type: Spontaneous
  Country: GB (occurrence: GB)
  Receive Date: 20201229
  Receipt Date: 20201229
  Transmission Date: 20210114
  Serious: Yes (Other)
  Sender: FDA-Public Use
  Company Number: GB-TORRENT-00024638

PATIENT
  Age: 63 Year
  Sex: Female
  Weight: 67 kg

DRUGS (1)
  1. DULOXETINE. [Suspect]
     Active Substance: DULOXETINE
     Indication: ANXIETY
     Route: 048
     Dates: start: 20200701, end: 202010

REACTIONS (8)
  - Tremor [Unknown]
  - Fear [Unknown]
  - Chest discomfort [Unknown]
  - Muscle tightness [Recovered/Resolved with Sequelae]
  - Nausea [Unknown]
  - Heart rate increased [Unknown]
  - Bruxism [Recovered/Resolved with Sequelae]
  - Dyspnoea [Unknown]

NARRATIVE: CASE EVENT DATE: 20200701
